FAERS Safety Report 9257624 (Version 1)
Quarter: 2013Q2

REPORT INFORMATION
  Report Type: Spontaneous
  Country: US (occurrence: US)
  Receive Date: 20130426
  Receipt Date: 20130426
  Transmission Date: 20140414
  Serious: Yes (Hospitalization)
  Sender: FDA-Public Use
  Company Number: US-JNJFOC-20130413125

PATIENT
  Age: 65 Year
  Sex: Male

DRUGS (3)
  1. INVOKANA [Suspect]
     Indication: HYPERGLYCAEMIA
     Route: 048
  2. METFORMIN [Concomitant]
  3. ACTOS [Concomitant]

REACTIONS (3)
  - Myocardial infarction [Unknown]
  - Incorrect dose administered [Unknown]
  - Off label use [Unknown]
